FAERS Safety Report 6171602-X (Version None)
Quarter: 2009Q2

REPORT INFORMATION
  Report Type: 
  Country: None (occurrence: None)
  Receive Date: 20090429
  Receipt Date: 20090417
  Transmission Date: 20091009
  Serious: Yes (Life-Threatening, Other)
  Sender: FDA-Public Use
  Company Number: FR-ELI_LILLY_AND_COMPANY-FR200904004845

PATIENT
  Age: 50 Year
  Sex: Male

DRUGS (3)
  1. XIGRIS [Suspect]
     Indication: SEPTIC SHOCK
     Dosage: 24 MG/KG, EVERY HOUR
     Route: 042
     Dates: start: 20090415, end: 20090418
  2. NORADRENALIN                       /00127501/ [Concomitant]
     Dosage: UNK, UNKNOWN
     Route: 065
  3. ABCIXIMAB [Concomitant]
     Dosage: UNK, UNKNOWN
     Route: 065

REACTIONS (4)
  - ACUTE RESPIRATORY DISTRESS SYNDROME [None]
  - CYTOMEGALOVIRUS INFECTION [None]
  - PULMONARY HAEMORRHAGE [None]
  - THROMBOCYTOPENIA [None]
